FAERS Safety Report 9166261 (Version 1)
Quarter: 2013Q1

REPORT INFORMATION
  Report Type: Spontaneous
  Country: PK (occurrence: PK)
  Receive Date: 20130315
  Receipt Date: 20130315
  Transmission Date: 20140127
  Serious: Yes (Life-Threatening)
  Sender: FDA-Public Use
  Company Number: US-ASTRAZENECA-1996AS00200

PATIENT
  Age: 18 Month
  Sex: Male
  Weight: 10 kg

DRUGS (7)
  1. BUPIVACAINE HYDROCHLORIDE [Suspect]
     Route: 008
  2. BUPRENORPHINE [Suspect]
     Route: 037
  3. THIOPENTONE [Concomitant]
     Indication: INDUCTION OF ANAESTHESIA
  4. SUXAMETHONIUM [Concomitant]
     Indication: INDUCTION OF ANAESTHESIA
  5. FENTANYL [Concomitant]
     Indication: ANALGESIC THERAPY
  6. PANCURONIUM [Concomitant]
     Indication: HYPOTONIA
  7. HALOTHANE [Concomitant]
     Indication: ANAESTHESIA

REACTIONS (5)
  - Spinal anaesthesia [Recovered/Resolved]
  - Cycloplegia [Recovered/Resolved]
  - Respiratory arrest [Recovered/Resolved]
  - Heart rate decreased [Recovered/Resolved]
  - Blood pressure decreased [Recovered/Resolved]
